FAERS Safety Report 9001531 (Version 1)
Quarter: 2013Q1

REPORT INFORMATION
  Report Type: Spontaneous
  Country: US (occurrence: US)
  Receive Date: 20130107
  Receipt Date: 20130107
  Transmission Date: 20140127
  Serious: Yes (Other)
  Sender: FDA-Public Use
  Company Number: US-BAYER-2013-001297

PATIENT
  Age: 77 Year
  Sex: Female
  Weight: 63.49 kg

DRUGS (3)
  1. BRONKAID [Suspect]
     Indication: ASTHMA
     Dosage: 2 DF, PRN
     Route: 048
     Dates: start: 2009
  2. FUROSEMIDE [Concomitant]
  3. LISINOPRIL [Concomitant]

REACTIONS (1)
  - Cardiac failure [None]
